FAERS Safety Report 8695142 (Version 2)
Quarter: 2013Q4

REPORT INFORMATION
  Report Type: Spontaneous
  Country: US (occurrence: US)
  Receive Date: 20120731
  Receipt Date: 20131106
  Transmission Date: 20140711
  Serious: Yes (Life-Threatening, Hospitalization)
  Sender: FDA-Public Use
  Company Number: US-009507513-1207USA010617

PATIENT
  Age: 84 Year
  Sex: Female

DRUGS (5)
  1. ZOCOR [Suspect]
     Dosage: 80 MG, QD
     Route: 048
  2. AMLODIPINE BESYLATE [Interacting]
     Dosage: 10 MG, QD
     Route: 048
  3. LANOXIN [Concomitant]
     Dosage: 0.125 MG, QD
     Route: 048
  4. LISINOPRIL [Concomitant]
     Dosage: 20 MG, QD
     Route: 048
  5. ASPIRIN [Concomitant]
     Route: 048

REACTIONS (10)
  - Muscular weakness [Unknown]
  - Myositis [Unknown]
  - Renal failure acute [Unknown]
  - Listless [Unknown]
  - Drug interaction [Unknown]
  - Metabolic acidosis [Unknown]
  - General physical health deterioration [Unknown]
  - Rhabdomyolysis [Unknown]
  - Night sweats [Unknown]
  - Liver injury [Unknown]
